FAERS Safety Report 10216533 (Version 2)
Quarter: 2014Q2

REPORT INFORMATION
  Report Type: Spontaneous
  Country: FR (occurrence: FR)
  Receive Date: 20140604
  Receipt Date: 20140616
  Transmission Date: 20141212
  Serious: Yes (Death, Hospitalization)
  Sender: FDA-Public Use
  Company Number: FR-PFIZER INC-2014149028

PATIENT
  Age: 68 Year
  Sex: Male

DRUGS (8)
  1. CORDARONE [Suspect]
     Dosage: 200 MG, DAILY
     Route: 048
     Dates: end: 20101003
  2. KARDEGIC [Concomitant]
  3. ZOCOR [Concomitant]
  4. COZAAR [Concomitant]
  5. INEXIUM [Concomitant]
  6. OMEXEL LP [Concomitant]
  7. PERMIXON [Concomitant]
  8. NASONEX [Concomitant]

REACTIONS (22)
  - Lung disorder [Fatal]
  - Acute respiratory distress syndrome [Fatal]
  - Abdominal pain [Unknown]
  - Pelvic pain [Unknown]
  - Pyrexia [Unknown]
  - Asthenia [Unknown]
  - Hallucination, visual [Unknown]
  - Acute respiratory failure [Unknown]
  - Depressed level of consciousness [Unknown]
  - Alveolar lung disease [Unknown]
  - Atrial fibrillation [Unknown]
  - Renal failure [Unknown]
  - Pneumothorax [Unknown]
  - Polyneuropathy [Unknown]
  - Anorectal infection [Unknown]
  - Anorectal infection [Unknown]
  - Escherichia infection [Unknown]
  - Lung infection [Unknown]
  - Anaemia [Unknown]
  - Hypercapnic coma [Unknown]
  - Hypotension [Unknown]
  - Ejection fraction decreased [Unknown]
